FAERS Safety Report 17556749 (Version 4)
Quarter: 2020Q2

REPORT INFORMATION
  Report Type: Report from Study
  Country: ES (occurrence: ES)
  Receive Date: 20200318
  Receipt Date: 20200415
  Transmission Date: 20200713
  Serious: Yes (Life-Threatening, Hospitalization)
  Sender: FDA-Public Use
  Company Number: NVSC2020ES068440

PATIENT
  Age: 65 Year
  Sex: Male
  Weight: 68.6 kg

DRUGS (64)
  1. MYCOPHENOLATE MOFETIL. [Suspect]
     Active Substance: MYCOPHENOLATE MOFETIL
     Indication: LIVER TRANSPLANT
     Dosage: UNK
     Route: 042
     Dates: start: 20200207
  2. TACROLIMUS. [Suspect]
     Active Substance: TACROLIMUS
     Dosage: UNK
     Route: 048
     Dates: start: 20200214
  3. APIDRA [Concomitant]
     Active Substance: INSULIN GLULISINE
     Indication: TYPE 2 DIABETES MELLITUS
     Dosage: 100UI/ML
     Route: 065
     Dates: start: 20200210, end: 20200218
  4. APIDRA [Concomitant]
     Active Substance: INSULIN GLULISINE
     Dosage: UNK
     Route: 065
     Dates: start: 20200221
  5. AMOXICILINA-CLAVULANICO [Concomitant]
     Active Substance: AMOXICILLIN\CLAVULANATE POTASSIUM
     Indication: LIVER TRANSPLANT
     Dosage: 875 + 125 MG
     Route: 065
     Dates: start: 20200214, end: 20200219
  6. PREDNISONA [Concomitant]
     Active Substance: PREDNISONE
     Indication: LIVER TRANSPLANT
     Dosage: 10 MG
     Route: 065
     Dates: start: 20200207, end: 20200217
  7. PREDNISONA [Concomitant]
     Active Substance: PREDNISONE
     Dosage: 50 MG
     Route: 065
     Dates: start: 20200306, end: 20200309
  8. LINAGLIPTINA [Concomitant]
     Active Substance: LINAGLIPTIN
     Indication: TYPE 2 DIABETES MELLITUS
     Dosage: 5 MG
     Route: 065
     Dates: start: 20200219
  9. PROGRAF [Concomitant]
     Active Substance: TACROLIMUS
     Indication: LIVER TRANSPLANT
     Dosage: UNK
     Route: 065
     Dates: start: 20200207, end: 20200213
  10. PARACETAMOL [Concomitant]
     Active Substance: ACETAMINOPHEN
     Dosage: 1 G, UNK
     Route: 065
     Dates: start: 20200210, end: 20200214
  11. AMLODIPINO [Concomitant]
     Active Substance: AMLODIPINE BESYLATE
     Indication: GENERAL PHYSICAL CONDITION
     Dosage: UNK
     Route: 065
     Dates: start: 20180115, end: 20200221
  12. APIDRA [Concomitant]
     Active Substance: INSULIN GLULISINE
     Dosage: 100UI/ML
     Route: 065
     Dates: start: 20200218, end: 20200221
  13. FUROSEMIDE. [Concomitant]
     Active Substance: FUROSEMIDE
     Dosage: 40 MG, UNK
     Route: 065
     Dates: start: 20200221, end: 20200306
  14. PREDNISONA [Concomitant]
     Active Substance: PREDNISONE
     Dosage: 50 MG
     Route: 065
     Dates: start: 20200309, end: 20200309
  15. ENTECAVIR. [Concomitant]
     Active Substance: ENTECAVIR
     Indication: LIVER TRANSPLANT
     Dosage: 0.5 MG
     Route: 065
     Dates: start: 20200207
  16. LANTUS [Concomitant]
     Active Substance: INSULIN GLARGINE
     Indication: TYPE 2 DIABETES MELLITUS
     Dosage: 100 UI/ML
     Route: 065
     Dates: start: 20200210, end: 20200218
  17. LANTUS [Concomitant]
     Active Substance: INSULIN GLARGINE
     Dosage: 100 UI/ML
     Route: 065
     Dates: start: 20200218, end: 20200221
  18. APIDRA [Concomitant]
     Active Substance: INSULIN GLULISINE
     Dosage: UNK
     Route: 065
     Dates: start: 20200219
  19. METFORMINA [Concomitant]
     Active Substance: METFORMIN HYDROCHLORIDE
     Indication: TYPE 2 DIABETES MELLITUS
     Dosage: 850 MG, UNK
     Route: 065
     Dates: start: 20200211, end: 20200219
  20. PROGRAF [Concomitant]
     Active Substance: TACROLIMUS
     Dosage: UNK
     Route: 065
     Dates: start: 20200219, end: 20200221
  21. PROGRAF [Concomitant]
     Active Substance: TACROLIMUS
     Dosage: UNK
     Route: 065
     Dates: start: 20200222, end: 20200227
  22. OMEPRAZOL [Concomitant]
     Active Substance: OMEPRAZOLE
     Indication: LIVER TRANSPLANT
     Dosage: 20 MG, UNK
     Route: 065
     Dates: start: 20200208, end: 20200309
  23. PARACETAMOL [Concomitant]
     Active Substance: ACETAMINOPHEN
     Indication: LIVER TRANSPLANT
     Dosage: 1 G, UNK
     Route: 065
     Dates: start: 20200219, end: 20200221
  24. COTRIMOXAZOL [Concomitant]
     Active Substance: SULFAMETHOXAZOLE\TRIMETHOPRIM
     Indication: LIVER TRANSPLANT
     Dosage: UNK
     Route: 065
     Dates: start: 20200208, end: 20200309
  25. METFORMINA [Concomitant]
     Active Substance: METFORMIN HYDROCHLORIDE
     Dosage: 850 MG, UNK
     Route: 065
     Dates: start: 20200219
  26. AMOXICILINA-CLAVULANICO [Concomitant]
     Active Substance: AMOXICILLIN\CLAVULANATE POTASSIUM
     Dosage: UNK
     Route: 065
     Dates: start: 20200221, end: 20200224
  27. AMOXICILINA-CLAVULANICO [Concomitant]
     Active Substance: AMOXICILLIN\CLAVULANATE POTASSIUM
     Dosage: UNK
     Route: 065
     Dates: start: 20200219, end: 20200222
  28. AMOXICILINA-CLAVULANICO [Concomitant]
     Active Substance: AMOXICILLIN\CLAVULANATE POTASSIUM
     Dosage: 1G+200 MG
     Route: 065
     Dates: start: 20200211, end: 20200214
  29. PREDNISONA [Concomitant]
     Active Substance: PREDNISONE
     Dosage: 10 MG
     Route: 065
     Dates: start: 20200218, end: 20200221
  30. PREDNISONA [Concomitant]
     Active Substance: PREDNISONE
     Dosage: UNK
     Route: 065
     Dates: start: 20200221, end: 20200306
  31. PROGRAF [Concomitant]
     Active Substance: TACROLIMUS
     Dosage: UNK
     Route: 065
     Dates: start: 20200217, end: 20200218
  32. LORAZEPAM. [Concomitant]
     Active Substance: LORAZEPAM
     Indication: LIVER TRANSPLANT
     Dosage: 1 MG, UNK
     Route: 065
     Dates: start: 20200217, end: 20200219
  33. ACETYLSALICYLIC ACID [Concomitant]
     Active Substance: ASPIRIN
     Indication: LIVER TRANSPLANT
     Dosage: 100 MG, UNK
     Route: 065
     Dates: start: 20200210, end: 20200219
  34. TOUJEO [Concomitant]
     Active Substance: INSULIN GLARGINE
     Indication: LIVER TRANSPLANT
     Dosage: UNK
     Route: 065
     Dates: start: 20200219
  35. METOCLOPRAMIDE. [Concomitant]
     Active Substance: METOCLOPRAMIDE
     Indication: LIVER TRANSPLANT
     Dosage: 10 MG
     Route: 065
     Dates: start: 20200207, end: 20200214
  36. METOCLOPRAMIDE. [Concomitant]
     Active Substance: METOCLOPRAMIDE
     Indication: GENERAL PHYSICAL CONDITION
     Dosage: UNK
     Route: 065
     Dates: start: 20200214
  37. HIDROCLOROTIAZIDA [Concomitant]
     Active Substance: HYDROCHLOROTHIAZIDE
     Indication: HYPERTENSION
     Dosage: 12.5 MG
     Route: 065
     Dates: start: 20180115, end: 20200221
  38. VALSARTAN. [Concomitant]
     Active Substance: VALSARTAN
     Indication: HYPERTENSION
     Dosage: 160 MG
     Route: 065
     Dates: start: 20180115, end: 20200221
  39. TACROLIMUS. [Suspect]
     Active Substance: TACROLIMUS
     Indication: LIVER TRANSPLANT
     Dosage: UNK
     Route: 048
     Dates: start: 20200207
  40. AMLODIPINO [Concomitant]
     Active Substance: AMLODIPINE BESYLATE
     Indication: LIVER TRANSPLANT
     Dosage: 5 MG,UNK
     Route: 065
     Dates: start: 20200208, end: 20200219
  41. LANTUS [Concomitant]
     Active Substance: INSULIN GLARGINE
     Dosage: 100 UI/ML
     Route: 065
     Dates: start: 20200308, end: 20200309
  42. EXFORGE [Concomitant]
     Active Substance: AMLODIPINE BESYLATE\VALSARTAN
     Indication: HYPERTENSION
     Dosage: UNK
     Route: 065
     Dates: start: 20200221
  43. PROGRAF [Concomitant]
     Active Substance: TACROLIMUS
     Dosage: UNK
     Route: 065
     Dates: start: 20200218, end: 20200218
  44. ENOXAPARINA [Concomitant]
     Active Substance: ENOXAPARIN
     Indication: LIVER TRANSPLANT
     Dosage: UNK
     Route: 065
     Dates: start: 20200219, end: 20200306
  45. NISTATINA [Concomitant]
     Active Substance: NYSTATIN
     Indication: LIVER TRANSPLANT
     Dosage: 1.000.000 UI/10ML
     Route: 048
     Dates: start: 20200207, end: 20200219
  46. CHLORHEXIDIN [Concomitant]
     Active Substance: CHLORHEXIDINE
     Indication: GENERAL PHYSICAL CONDITION
     Dosage: 0.12% SOBRE 12ML
     Route: 042
     Dates: start: 20200207, end: 20200219
  47. ALBUMINA [Concomitant]
     Active Substance: ALBUMIN HUMAN
     Indication: LIVER TRANSPLANT
     Dosage: 20% 10G/50ML
     Route: 065
     Dates: start: 20200212, end: 20200214
  48. BEMIPARIN [Concomitant]
     Active Substance: BEMIPARIN
     Indication: LIVER TRANSPLANT
     Dosage: 3.500 UI/0.2 ML
     Route: 065
     Dates: start: 20200210, end: 20200219
  49. APIDRA [Concomitant]
     Active Substance: INSULIN GLULISINE
     Dosage: 100UI/ML
     Route: 065
     Dates: start: 20200306, end: 20200308
  50. TOUJEO [Concomitant]
     Active Substance: INSULIN GLARGINE
     Indication: TYPE 2 DIABETES MELLITUS
  51. LIDOCAINA VISCOSA [Concomitant]
     Indication: GENERAL PHYSICAL CONDITION
     Dosage: UNK
     Route: 065
     Dates: start: 20200312
  52. MYCOPHENOLATE MOFETIL. [Suspect]
     Active Substance: MYCOPHENOLATE MOFETIL
     Indication: LIVER TRANSPLANT
     Dosage: UNK
     Route: 048
     Dates: start: 20200214
  53. IMMUNOGLOBULIN ANTI-HEPATITIS B SURFACE ANTIG [Concomitant]
     Indication: LIVER TRANSPLANT
     Dosage: 1.000 UI 4ML
     Route: 042
     Dates: start: 20200208, end: 20200215
  54. PREDNISONA [Concomitant]
     Active Substance: PREDNISONE
     Dosage: 10 MG
     Route: 065
     Dates: start: 20200217, end: 20200218
  55. ISCALIMAB [Suspect]
     Active Substance: ISCALIMAB
     Indication: LIVER TRANSPLANT
     Dosage: 30 MG/KG, ONCE/SINGLE
     Route: 058
     Dates: start: 20200214
  56. MYCOPHENOLATE MOFETIL. [Suspect]
     Active Substance: MYCOPHENOLATE MOFETIL
     Dosage: UNK
     Route: 048
     Dates: start: 20200214
  57. LANTUS [Concomitant]
     Active Substance: INSULIN GLARGINE
     Dosage: 100 UI/ML
     Route: 065
     Dates: start: 20200218, end: 20200219
  58. APIDRA [Concomitant]
     Active Substance: INSULIN GLULISINE
     Dosage: 100UI/ML
     Route: 065
     Dates: start: 20200308
  59. FUROSEMIDE. [Concomitant]
     Active Substance: FUROSEMIDE
     Indication: LIVER TRANSPLANT
     Dosage: 40 MG, UNK
     Route: 065
     Dates: start: 20200212
  60. PROGRAF [Concomitant]
     Active Substance: TACROLIMUS
     Dosage: UNK
     Route: 065
     Dates: start: 20200214, end: 20200217
  61. ENTECAVIR. [Concomitant]
     Active Substance: ENTECAVIR
     Indication: HEPATITIS B SURFACE ANTIGEN
  62. NISTATINA [Concomitant]
     Active Substance: NYSTATIN
     Indication: GENERAL PHYSICAL CONDITION
     Dosage: UNK
     Route: 065
     Dates: start: 20200311
  63. ONDANSETRON [Concomitant]
     Active Substance: ONDANSETRON
     Indication: GENERAL PHYSICAL CONDITION
     Dosage: 4MG/ 2ML INY
     Route: 065
     Dates: start: 20200217
  64. METAMIZOL [Concomitant]
     Active Substance: METAMIZOLE SODIUM
     Indication: LIVER TRANSPLANT
     Dosage: 575 MG, UNK
     Route: 065
     Dates: start: 20200219, end: 20200221

REACTIONS (2)
  - Graft versus host disease [Not Recovered/Not Resolved]
  - Rash [Not Recovered/Not Resolved]

NARRATIVE: CASE EVENT DATE: 20200305
